FAERS Safety Report 8479412-5 (Version None)
Quarter: 2012Q2

REPORT INFORMATION
  Report Type: 
  Country: None (occurrence: None)
  Receive Date: 20120402
  Receipt Date: 20120113
  Transmission Date: 20120825
  Serious: Yes (Other)
  Sender: FDA-Public Use
  Company Number: GXBR2012US000504

PATIENT
  Age: 26 Year
  Sex: Female

DRUGS (3)
  1. INFUVITE ADULT [Suspect]
     Indication: PROPHYLAXIS AGAINST DEHYDRATION
     Dosage: 1 DF, QD, INFUSION
     Dates: start: 20111201, end: 20120108
  2. LACTATED RINGER'S [Suspect]
     Indication: PROPHYLAXIS AGAINST DEHYDRATION
     Dosage: 1 DF, BID, INFUSION
     Dates: start: 20111201
  3. INFUVITE ADULT [Suspect]

REACTIONS (2)
  - MATERNAL EXPOSURE DURING PREGNANCY [None]
  - ANAPHYLACTIC REACTION [None]
